FAERS Safety Report 10538264 (Version 2)
Quarter: 2014Q4

REPORT INFORMATION
  Report Type: Spontaneous
  Country: JP (occurrence: JP)
  Receive Date: 20141023
  Receipt Date: 20141104
  Transmission Date: 20150529
  Serious: No
  Sender: FDA-Public Use
  Company Number: JP-ASTELLAS-2014JP023649AA

PATIENT
  Age: 10 Decade
  Sex: Male

DRUGS (1)
  1. BETANIS [Suspect]
     Active Substance: MIRABEGRON
     Indication: PRODUCT USED FOR UNKNOWN INDICATION
     Dosage: 50 MG, ONCE DAILY, AFTER A MEAL
     Route: 065

REACTIONS (1)
  - Chest X-ray abnormal [Unknown]
